FAERS Safety Report 9371408 (Version 2)
Quarter: 2015Q1

REPORT INFORMATION
  Report Type: Spontaneous
  Country: GB (occurrence: GB)
  Receive Date: 20130627
  Receipt Date: 20150331
  Transmission Date: 20150721
  Serious: Yes (Other)
  Sender: FDA-Public Use
  Company Number: GB-RANBAXY-2013R1-70658

PATIENT
  Age: 50 Year
  Sex: Female

DRUGS (5)
  1. ABACAVIR [Concomitant]
     Active Substance: ABACAVIR
     Indication: ANTIRETROVIRAL THERAPY
     Dosage: UNK
     Route: 065
  2. LAMIVUDINE. [Concomitant]
     Active Substance: LAMIVUDINE
     Indication: ANTIRETROVIRAL THERAPY
     Dosage: UNK
     Route: 065
  3. TRIAMCINOLONE [Suspect]
     Active Substance: TRIAMCINOLONE
     Indication: SERONEGATIVE ARTHRITIS
     Dosage: 40 MG INTO EACH SHOULDER AND EACH TROCHANTERIC BURSA
     Route: 050
  4. RITONAVIR. [Interacting]
     Active Substance: RITONAVIR
     Indication: ANTIRETROVIRAL THERAPY
     Dosage: UNK
     Route: 065
  5. DARUNAVIR [Concomitant]
     Active Substance: DARUNAVIR
     Indication: ANTIRETROVIRAL THERAPY
     Dosage: UNK
     Route: 065

REACTIONS (3)
  - Cushing^s syndrome [Unknown]
  - Drug interaction [Unknown]
  - Adrenal insufficiency [Unknown]
